FAERS Safety Report 24982140 (Version 1)
Quarter: 2025Q1

REPORT INFORMATION
  Report Type: Spontaneous
  Country: US (occurrence: None)
  Receive Date: 20250216
  Receipt Date: 20250216
  Transmission Date: 20250408
  Serious: Yes (Hospitalization)
  Sender: FDA-CTU
  Company Number: None

PATIENT
  Age: 10 Year
  Sex: Male
  Weight: 35.8 kg

DRUGS (1)
  1. CEFAZOLIN [Suspect]
     Active Substance: CEFAZOLIN
     Route: 041
     Dates: start: 20250215, end: 20250215

REACTIONS (2)
  - Tremor [None]
  - Swelling face [None]

NARRATIVE: CASE EVENT DATE: 20250215
